FAERS Safety Report 11051620 (Version 1)
Quarter: 2015Q2

REPORT INFORMATION
  Report Type: Spontaneous
  Country: US (occurrence: None)
  Receive Date: 20150420
  Receipt Date: 20150420
  Transmission Date: 20150821
  Serious: No
  Sender: FDA-Public Use
  Company Number: None

PATIENT
  Sex: Female

DRUGS (1)
  1. MGB CLOBETASOL PROPIONATE .05% MGP [Suspect]
     Active Substance: CLOBETASOL PROPIONATE
     Route: 061

REACTIONS (1)
  - Drug ineffective [None]
